FAERS Safety Report 8884788 (Version 2)
Quarter: 2012Q4

REPORT INFORMATION
  Report Type: 
  Country: US (occurrence: US)
  Receive Date: 20121102
  Receipt Date: 20121116
  Transmission Date: 20130627
  Serious: Yes (Other)
  Sender: FDA-Public Use
  Company Number: US-TARO-2012P1061257

PATIENT
  Age: 50 Year
  Sex: Female
  Weight: 61.24 kg

DRUGS (6)
  1. CLOBETASOL PROPIONATE [Suspect]
     Indication: LICHEN SCLEROSUS
     Route: 067
     Dates: start: 201103
  2. CLOBETASOL PROPIONATE [Suspect]
     Indication: LICHEN SCLEROSUS
     Route: 067
     Dates: start: 201207, end: 201207
  3. NATURE^S WAY RED CLOVER [Suspect]
     Indication: PRURITUS
  4. TURMERIC [Suspect]
     Indication: PRURITUS
  5. ESTRACE [Suspect]
     Indication: APPLICATION SITE IRRITATION
  6. TESTOSTERONE [Suspect]
     Indication: APPLICATION SITE IRRITATION

REACTIONS (9)
  - Application site vesicles [Not Recovered/Not Resolved]
  - Application site anaesthesia [Not Recovered/Not Resolved]
  - Application site inflammation [Not Recovered/Not Resolved]
  - Headache [Not Recovered/Not Resolved]
  - Erythema [Not Recovered/Not Resolved]
  - Nerve injury [Not Recovered/Not Resolved]
  - Pain [Not Recovered/Not Resolved]
  - Vaginal cyst [Recovering/Resolving]
  - Vulval disorder [Not Recovered/Not Resolved]
